FAERS Safety Report 16457537 (Version 1)
Quarter: 2019Q2

REPORT INFORMATION
  Report Type: Spontaneous
  Country: SE (occurrence: SE)
  Receive Date: 20190620
  Receipt Date: 20190620
  Transmission Date: 20190711
  Serious: Yes (Disabling)
  Sender: FDA-Public Use
  Company Number: PHHY2019SE139407

PATIENT
  Age: 48 Year
  Sex: Male

DRUGS (2)
  1. TEGRETOL [Suspect]
     Active Substance: CARBAMAZEPINE
     Indication: EPILEPSY
     Dosage: 3 DF, QD (1 + 2 PER DYGN)
     Route: 065
     Dates: start: 2000
  2. FLUDENT [Concomitant]
     Active Substance: SODIUM FLUORIDE
     Indication: PRODUCT USED FOR UNKNOWN INDICATION
     Dosage: UNK
     Route: 065

REACTIONS (4)
  - Halo vision [Recovered/Resolved]
  - Psychiatric symptom [Recovered/Resolved]
  - Intraocular pressure increased [Recovered/Resolved]
  - Folate deficiency [Recovered/Resolved]

NARRATIVE: CASE EVENT DATE: 201905
